FAERS Safety Report 10543452 (Version 3)
Quarter: 2015Q1

REPORT INFORMATION
  Report Type: Spontaneous
  Country: US (occurrence: US)
  Receive Date: 20141027
  Receipt Date: 20150225
  Transmission Date: 20150720
  Serious: Yes (Hospitalization)
  Sender: FDA-Public Use
  Company Number: US-PFIZER INC-2014291422

PATIENT
  Age: 66 Year
  Sex: Male
  Weight: 104 kg

DRUGS (1)
  1. AMLODIPINE BESILATE [Suspect]
     Active Substance: AMLODIPINE BESYLATE
     Indication: HYPERTENSION
     Dosage: 10 MG, DAILY (ONCE A NIGHT)
     Route: 048
     Dates: start: 201409

REACTIONS (10)
  - Musculoskeletal discomfort [Recovered/Resolved]
  - Foreign body [Recovered/Resolved]
  - Oropharyngeal discomfort [Recovered/Resolved]
  - Dysgeusia [Recovered/Resolved]
  - Dysphagia [Recovered/Resolved]
  - Upper respiratory tract irritation [Recovered/Resolved]
  - Product coating issue [Recovered/Resolved]
  - Feeling abnormal [Recovered/Resolved]
  - Product quality issue [Recovered/Resolved]
  - Cough [Recovered/Resolved]

NARRATIVE: CASE EVENT DATE: 20141019
